FAERS Safety Report 12203463 (Version 1)
Quarter: 2016Q1

REPORT INFORMATION
  Report Type: Spontaneous
  Country: US (occurrence: US)
  Receive Date: 20160323
  Receipt Date: 20160323
  Transmission Date: 20160526
  Serious: Yes (Other)
  Sender: FDA-Public Use
  Company Number: US-BAYER-2016-051901

PATIENT
  Age: 45 Year
  Sex: Male
  Weight: 97.51 kg

DRUGS (2)
  1. ALEVE [Suspect]
     Active Substance: NAPROXEN SODIUM
     Indication: ARTHRALGIA
     Dosage: 4 DF, UNK
  2. ALEVE [Suspect]
     Active Substance: NAPROXEN SODIUM
     Indication: ARTHRALGIA
     Dosage: 3 DF, QD
     Route: 048
     Dates: start: 2010, end: 20160312

REACTIONS (6)
  - Product use issue [None]
  - Gastric ulcer [Not Recovered/Not Resolved]
  - Sluggishness [Recovered/Resolved]
  - Product use issue [None]
  - Dyspnoea [Recovered/Resolved]
  - Haemoglobin decreased [None]

NARRATIVE: CASE EVENT DATE: 2010
